FAERS Safety Report 24578826 (Version 1)
Quarter: 2024Q4

REPORT INFORMATION
  Report Type: Spontaneous
  Country: PL (occurrence: PL)
  Receive Date: 20241105
  Receipt Date: 20241105
  Transmission Date: 20250115
  Serious: Yes (Hospitalization)
  Sender: BOEHRINGER INGELHEIM
  Company Number: PL-BoehringerIngelheim-2024-BI-060278

PATIENT
  Sex: Male

DRUGS (2)
  1. PRADAXA [Suspect]
     Active Substance: DABIGATRAN ETEXILATE MESYLATE
     Indication: Atrial fibrillation
     Dosage: DISCONTINUED
     Dates: end: 20141021
  2. PRADAXA [Suspect]
     Active Substance: DABIGATRAN ETEXILATE MESYLATE
     Dosage: PATIENT CAME BACK TO THE THERAPY WITH PRADAXA 2X150 MG.

REACTIONS (2)
  - Cardiac tamponade [Unknown]
  - Cryotherapy [Unknown]

NARRATIVE: CASE EVENT DATE: 20141021
